FAERS Safety Report 8170528-X (Version None)
Quarter: 2012Q1

REPORT INFORMATION
  Report Type: 
  Country: None (occurrence: None)
  Receive Date: 20120104
  Receipt Date: 20111005
  Transmission Date: 20120608
  Serious: No
  Sender: FDA-Public Use
  Company Number: 2011HGS-002508

PATIENT
  Age: 57 Year
  Sex: Female

DRUGS (21)
  1. CALCIUM CARBONATE [Concomitant]
  2. PREVACID [Concomitant]
  3. AMLODIPINE [Concomitant]
  4. PRISTIQ (ANTIDEPRESSANTS) (DESVENLAFAXINE) [Concomitant]
  5. FLUCONAZOLE [Concomitant]
  6. ISTALOL (TIMOLOL) [Concomitant]
  7. PLAQUENIL [Concomitant]
  8. DIAZEPAM [Concomitant]
  9. ALLEGRA [Concomitant]
  10. BENLYSTA [Suspect]
     Indication: SYSTEMIC LUPUS ERYTHEMATOSUS
     Dosage: 800 MG, 1 IN 14 D, INTRAVENOUS DRIP
     Route: 041
     Dates: start: 20110713
  11. PREDNISONE TAB [Concomitant]
  12. ALLERGEN (CHLORPHENAMINE MALEATE) [Concomitant]
  13. LUMIGA (BIMATOPROST) [Concomitant]
  14. ONE-A-DAY VITAMIN (ONE-A-DAY) (ERGOCALCIFEROL, ASCORBIC ACID, PYRIDOXI [Concomitant]
  15. XOLAIR [Concomitant]
  16. POTASSIUM CHLORIDE [Concomitant]
  17. CELEBREX [Concomitant]
  18. DYAZIDE (DYAZIDE) (HYDROCHLOROTHIAZIDE, TRIAMTERENE) [Concomitant]
  19. FOLIC ACID [Concomitant]
  20. SINGULAIR [Concomitant]
  21. TYLENOL (TYLENOL PM) (DIPHENHYDRAMINE, PARACETAMOL) [Concomitant]

REACTIONS (1)
  - RASH [None]
